FAERS Safety Report 21889939 (Version 3)
Quarter: 2023Q2

REPORT INFORMATION
  Report Type: Report from Study
  Country: CA (occurrence: CA)
  Receive Date: 20230120
  Receipt Date: 20230602
  Transmission Date: 20230721
  Serious: Yes (Hospitalization)
  Sender: FDA-Public Use
  Company Number: CA-JNJFOC-20221143475

PATIENT
  Age: 62 Year
  Sex: Male
  Weight: 136 kg

DRUGS (1)
  1. REMICADE [Suspect]
     Active Substance: INFLIXIMAB
     Indication: Crohn^s disease
     Dosage: PHYSICIAN REQUESTING INDUCTION WEEK 0, 4 FOLLOWED BY 1 EVERY 8 WEEK MAINTENANCE AT 5 MG/KG.
     Route: 042
     Dates: start: 20221013

REACTIONS (2)
  - Intestinal resection [Recovering/Resolving]
  - Off label use [Unknown]

NARRATIVE: CASE EVENT DATE: 20221202
